FAERS Safety Report 17085819 (Version 1)
Quarter: 2019Q4

REPORT INFORMATION
  Report Type: Spontaneous
  Country: US (occurrence: US)
  Receive Date: 20191128
  Receipt Date: 20191128
  Transmission Date: 20200122
  Serious: No
  Sender: FDA-Public Use
  Company Number: US-ALKEM LABORATORIES LIMITED-US-ALKEM-2019-01284

PATIENT
  Sex: Female

DRUGS (2)
  1. OLANZAPINE. [Suspect]
     Active Substance: OLANZAPINE
     Indication: ANOREXIA NERVOSA
     Dosage: 2.5 MG, QD (IN THE EVENING OR AT BEDTIME)
     Route: 048
  2. OLANZAPINE. [Suspect]
     Active Substance: OLANZAPINE
     Dosage: INCREASED BY 2.5 MG EACH WEEK TO A TARGET DOSE OF 10 MG/DAY BY WEEK 4
     Route: 048

REACTIONS (2)
  - Patient dissatisfaction with treatment [Unknown]
  - Sedation [Unknown]
